FAERS Safety Report 5130015-X (Version None)
Quarter: 2006Q4

REPORT INFORMATION
  Report Type: 
  Country: None (occurrence: None)
  Receive Date: 20061013
  Receipt Date: 20061004
  Transmission Date: 20070319
  Serious: Yes (Hospitalization)
  Sender: FDA-Public Use
  Company Number: 2006093818

PATIENT
  Age: 52 Year
  Sex: Female
  Weight: 48 kg

DRUGS (4)
  1. ZOLOFT [Suspect]
     Dosage: ORAL
     Route: 048
     Dates: start: 20060725
  2. XANAX [Suspect]
     Dosage: ORAL
     Route: 048
  3. EFFEXOR [Suspect]
     Dosage: ORAL
     Route: 048
  4. STRESAM (ETIFOXINE) [Suspect]
     Indication: ANXIETY
     Dosage: (3 IN 1 D)
     Dates: start: 20060601

REACTIONS (7)
  - INCORRECT DOSE ADMINISTERED [None]
  - INSOMNIA [None]
  - REFUSAL OF TREATMENT BY PATIENT [None]
  - SUICIDE ATTEMPT [None]
  - TINNITUS [None]
  - VISION BLURRED [None]
  - VISUAL ACUITY REDUCED [None]
